FAERS Safety Report 10381899 (Version 1)
Quarter: 2014Q3

REPORT INFORMATION
  Report Type: Spontaneous
  Country: FR (occurrence: FR)
  Receive Date: 20140813
  Receipt Date: 20140813
  Transmission Date: 20150326
  Serious: Yes (Hospitalization)
  Sender: FDA-Public Use
  Company Number: FR-GLAXOSMITHKLINE-B1023178A

PATIENT
  Age: 80 Year
  Sex: Male

DRUGS (4)
  1. CLOBEX [Suspect]
     Active Substance: CLOBETASOL PROPIONATE
     Indication: ERYTHRODERMIC PSORIASIS
     Dosage: 3UNIT WEEKLY
     Route: 061
     Dates: start: 20140401, end: 20140601
  2. TRIDESONIT [Suspect]
     Active Substance: DESONIDE
     Indication: ERYTHRODERMIC PSORIASIS
     Dates: start: 201404, end: 201406
  3. DIPROSONE [Suspect]
     Active Substance: BETAMETHASONE DIPROPIONATE
     Indication: ERYTHRODERMIC PSORIASIS
     Dates: start: 201404, end: 201406
  4. SORIATANE [Suspect]
     Active Substance: ACITRETIN
     Indication: ERYTHRODERMIC PSORIASIS
     Dosage: 25MG PER DAY
     Route: 048
     Dates: start: 20140529, end: 20140601

REACTIONS (2)
  - Meningoencephalitis viral [Unknown]
  - Herpes zoster [Unknown]

NARRATIVE: CASE EVENT DATE: 20140531
